FAERS Safety Report 10660626 (Version 1)
Quarter: 2014Q4

REPORT INFORMATION
  Report Type: Report from Study
  Country: CA (occurrence: CA)
  Receive Date: 20141217
  Receipt Date: 20141217
  Transmission Date: 20150529
  Serious: Yes (Other)
  Sender: FDA-Public Use
  Company Number: CA-MYLANLABS-2014M1014486

PATIENT

DRUGS (1)
  1. LIDOCAINE. [Suspect]
     Active Substance: LIDOCAINE
     Route: 065

REACTIONS (3)
  - Medication error [Unknown]
  - Seizure [Unknown]
  - Toxicity to various agents [Unknown]
